FAERS Safety Report 10555638 (Version 1)
Quarter: 2014Q4

REPORT INFORMATION
  Report Type: Spontaneous
  Country: US (occurrence: US)
  Receive Date: 20141030
  Receipt Date: 20141030
  Transmission Date: 20150529
  Serious: Yes (Hospitalization, Other)
  Sender: FDA-Public Use
  Company Number: US-B.I. PHARMACEUTICALS,INC./RIDGEFIELD-2014-BI-51621BP

PATIENT
  Sex: Male

DRUGS (1)
  1. PRADAXA [Suspect]
     Active Substance: DABIGATRAN ETEXILATE MESYLATE
     Indication: ATRIAL FIBRILLATION
     Dosage: 300 MG
     Route: 048
     Dates: start: 2010

REACTIONS (4)
  - Haemorrhage [Recovered/Resolved]
  - Aortic valve disease [Recovered/Resolved]
  - Back pain [Not Recovered/Not Resolved]
  - Functional gastrointestinal disorder [Recovered/Resolved]

NARRATIVE: CASE EVENT DATE: 2011
